FAERS Safety Report 7586524-7 (Version None)
Quarter: 2011Q2

REPORT INFORMATION
  Report Type: 
  Country: None (occurrence: None)
  Receive Date: 20110630
  Receipt Date: 20110630
  Transmission Date: 20111010
  Serious: Yes (Other)
  Sender: FDA-Public Use
  Company Number: None

PATIENT
  Age: 27 Year
  Sex: Female
  Weight: 33.5662 kg

DRUGS (21)
  1. JOLESSA [Concomitant]
  2. PULMICORT [Concomitant]
  3. DURAGESIC-100 [Concomitant]
  4. KEPPRA [Concomitant]
  5. DIFLUCAN [Concomitant]
  6. ACETAMINOPHEN W/ CODEINE [Concomitant]
  7. POTASSIUM CHLORIDE [Concomitant]
  8. CLONIDINE [Concomitant]
  9. LOPRESSOR [Concomitant]
  10. NUTREN [Concomitant]
  11. FLUCONAZOLE [Suspect]
     Indication: INFECTION PROPHYLAXIS
     Dosage: 200MG IV Q24H
     Route: 042
     Dates: start: 20110406, end: 20110410
  12. FLUCONAZOLE [Suspect]
     Indication: FUNGAL INFECTION
     Dosage: 200MG IV Q24H
     Route: 042
     Dates: start: 20110406, end: 20110410
  13. LORAZEPAM [Concomitant]
  14. DIASTAT ACUDIAL [Concomitant]
  15. LAMICTAL [Concomitant]
  16. SODIUM BICARBONATE [Concomitant]
  17. CATAPRES-TTS-1 [Concomitant]
  18. MIRALAX [Concomitant]
  19. GLYCOPYRROLATE [Concomitant]
  20. ALBUTEROL SULFATE AUTOHALER [Concomitant]
  21. PREVACID [Concomitant]

REACTIONS (4)
  - ERYTHEMA [None]
  - DYSPNOEA [None]
  - SWELLING [None]
  - SWELLING FACE [None]
